FAERS Safety Report 8214352-8 (Version None)
Quarter: 2012Q1

REPORT INFORMATION
  Report Type: 
  Country: None (occurrence: None)
  Receive Date: 20120315
  Receipt Date: 20120315
  Transmission Date: 20120608
  Serious: Yes (Hospitalization)
  Sender: FDA-Public Use
  Company Number: None

PATIENT
  Age: 57 Year
  Sex: Female
  Weight: 55 kg

DRUGS (1)
  1. SIMVASTATIN [Suspect]
     Indication: HYPERLIPIDAEMIA
     Dosage: 1 TAB HS PO
     Route: 048
     Dates: start: 20060316, end: 20111128

REACTIONS (6)
  - OBLITERATIVE BRONCHIOLITIS [None]
  - BRONCHIOLITIS [None]
  - INTERSTITIAL LUNG DISEASE [None]
  - RESPIRATORY FAILURE [None]
  - PNEUMONITIS [None]
  - ASPIRATION [None]
